FAERS Safety Report 20158790 (Version 3)
Quarter: 2022Q1

REPORT INFORMATION
  Report Type: Report from Study
  Country: FR (occurrence: None)
  Receive Date: 20211208
  Receipt Date: 20220202
  Transmission Date: 20220424
  Serious: Yes (Hospitalization, Disabling)
  Sender: FDA-Public Use
  Company Number: FR-ROCHE-2970267

PATIENT
  Age: 74 Year
  Sex: Female

DRUGS (1)
  1. ATEZOLIZUMAB [Suspect]
     Active Substance: ATEZOLIZUMAB
     Indication: Cervix carcinoma
     Dosage: FOR A CUMULATIVE DOSE OF 8400 MG
     Route: 041
     Dates: start: 20210614, end: 20211020

REACTIONS (2)
  - Arthralgia [Not Recovered/Not Resolved]
  - Femoral neck fracture [Recovered/Resolved]

NARRATIVE: CASE EVENT DATE: 20211106
